FAERS Safety Report 5257681-2 (Version None)
Quarter: 2007Q1

REPORT INFORMATION
  Report Type: 
  Country: None (occurrence: None)
  Receive Date: 20070307
  Receipt Date: 20070228
  Transmission Date: 20070707
  Serious: Yes (Death, Hospitalization, Disabling)
  Sender: FDA-Public Use
  Company Number: 2006UW21612

PATIENT
  Age: 1039 Month
  Sex: Female

DRUGS (2)
  1. SEROQUEL [Suspect]
     Indication: INSOMNIA
     Route: 048
     Dates: start: 20030101
  2. RISPERDAL [Suspect]
     Dates: start: 20040101

REACTIONS (2)
  - DEATH [None]
  - PANCREATITIS [None]
